FAERS Safety Report 24615378 (Version 3)
Quarter: 2025Q1

REPORT INFORMATION
  Report Type: Spontaneous
  Country: US (occurrence: US)
  Receive Date: 20241113
  Receipt Date: 20250108
  Transmission Date: 20250409
  Serious: Yes (Hospitalization)
  Sender: SANOFI AVENTIS
  Company Number: US-SA-2024SA328074

PATIENT
  Age: 83 Year
  Sex: Female

DRUGS (2)
  1. DUPIXENT [Suspect]
     Active Substance: DUPILUMAB
     Indication: Eczema
     Route: 058
     Dates: start: 20240911, end: 20240911
  2. DUPIXENT [Suspect]
     Active Substance: DUPILUMAB
     Dosage: 300 MG, QOW
     Route: 058
     Dates: start: 202409, end: 20241031

REACTIONS (10)
  - Speech disorder [Unknown]
  - Cerebral disorder [Unknown]
  - Fall [Unknown]
  - Hand fracture [Unknown]
  - Hypoacusis [Unknown]
  - Urinary tract infection [Unknown]
  - Blood pressure increased [Unknown]
  - Dizziness [Unknown]
  - Vision blurred [Unknown]
  - Eye pruritus [Unknown]

NARRATIVE: CASE EVENT DATE: 20240101
